FAERS Safety Report 8570343-9 (Version None)
Quarter: 2012Q3

REPORT INFORMATION
  Report Type: 
  Country: None (occurrence: None)
  Receive Date: 20120803
  Receipt Date: 20120730
  Transmission Date: 20120928
  Serious: Yes (Death, Hospitalization)
  Sender: FDA-Public Use
  Company Number: US-ASTRAZENECA-2012SE53700

PATIENT
  Age: 87 Year
  Sex: Female

DRUGS (8)
  1. ARICEPT [Concomitant]
  2. BYSTOLIC [Concomitant]
  3. PLAVIX [Concomitant]
  4. BRILINTA [Suspect]
     Indication: MYOCARDIAL INFARCTION
     Route: 048
     Dates: start: 20120616, end: 20120617
  5. ASPIRIN [Concomitant]
  6. SYNTHROID [Concomitant]
  7. ATORVASTATIN [Concomitant]
  8. VITAMIN D [Concomitant]
     Dosage: DAILY

REACTIONS (2)
  - GASTROINTESTINAL HAEMORRHAGE [None]
  - EPISTAXIS [None]
